FAERS Safety Report 23794577 (Version 2)
Quarter: 2024Q2

REPORT INFORMATION
  Report Type: Spontaneous
  Country: FR (occurrence: FR)
  Receive Date: 20240429
  Receipt Date: 20240508
  Transmission Date: 20240716
  Serious: Yes (Hospitalization)
  Sender: FDA-Public Use
  Company Number: FR-BAXTER-2024BAX017163

PATIENT
  Sex: Male

DRUGS (2)
  1. AMINO ACIDS\DEXTROSE\ELECTROLYTES NOS\SOYBEAN OIL [Suspect]
     Active Substance: AMINO ACIDS\DEXTROSE\ELECTROLYTES NOS\SOYBEAN OIL
     Dosage: FLOW RATE 4.6 ML/HOUR, NUMETAH G13% E PREMATURE DILUTED WITH AT LEAST 106 MILLILITER (ML) OF STERILE
     Route: 042
     Dates: start: 20240220, end: 20240220
  2. WATER FOR INJECTION [Suspect]
     Active Substance: WATER
     Indication: Medication dilution
     Dosage: AT LEAST 106 MILLILITER (ML) STERILE WATER FOR INJECTION USED TO DILUTE NUMETAH G13% E PREMATURE IN
     Route: 042
     Dates: start: 20240220, end: 20240220

REACTIONS (3)
  - Infusion site extravasation [Unknown]
  - Skin lesion [Unknown]
  - Skin erosion [Unknown]
